FAERS Safety Report 6111843-0 (Version None)
Quarter: 2009Q1

REPORT INFORMATION
  Report Type: 
  Country: None (occurrence: None)
  Receive Date: 20090311
  Receipt Date: 20090302
  Transmission Date: 20090719
  Serious: Yes (Hospitalization)
  Sender: FDA-Public Use
  Company Number: DE-PFIZER INC-2009176741

PATIENT

DRUGS (6)
  1. CELEBREX [Suspect]
     Indication: ARTHRITIS
     Dosage: 100 MG, 1X/DAY
     Route: 048
     Dates: end: 20081120
  2. METOPROLOL TARTRATE AND HYDROCHLOROTHIAZIDE [Suspect]
     Dosage: 100 MG, 1X/DAY
     Route: 048
  3. TELMISARTAN [Suspect]
     Indication: HYPERTENSION
     Dosage: 80 MG, 1X/DAY
     Route: 048
  4. CORDAREX [Suspect]
     Indication: ATRIAL FIBRILLATION
     Dosage: 200 MG, 1X/DAY
     Route: 048
     Dates: start: 20080301
  5. FALITHROM ^HEXAL^ [Concomitant]
     Indication: PROPHYLAXIS
     Dosage: 3 MG, 1X/DAY
     Route: 048
     Dates: start: 20060101
  6. TRIAMPUR [Concomitant]
     Indication: HYPERTENSION
     Dosage: 25 MG, 1X/DAY
     Route: 048

REACTIONS (3)
  - BRADYCARDIA [None]
  - DIZZINESS [None]
  - PARAESTHESIA [None]
